FAERS Safety Report 9074671 (Version 1)
Quarter: 2013Q1

REPORT INFORMATION
  Report Type: Report from Study
  Country: US (occurrence: US)
  Receive Date: 20130129
  Receipt Date: 20130129
  Transmission Date: 20140127
  Serious: No
  Sender: FDA-Public Use
  Company Number: US-ABBOTT-12P-163-0933436-00

PATIENT
  Age: 19 Year
  Sex: Male

DRUGS (6)
  1. HUMIRA 40 MG/0.8 ML PEN [Suspect]
     Indication: CROHN^S DISEASE
     Dosage: DOSE 1
     Dates: start: 20120420, end: 20120420
  2. HUMIRA 40 MG/0.8 ML PEN [Suspect]
     Dosage: DOSE 2
     Dates: start: 20120504
  3. FLAGYL [Concomitant]
     Indication: CROHN^S DISEASE
  4. DEPAKENE [Concomitant]
     Indication: AFFECTIVE DISORDER
  5. DEPAKENE [Concomitant]
     Indication: AUTISM
  6. APRISO [Concomitant]
     Indication: CROHN^S DISEASE

REACTIONS (3)
  - Erythema [Not Recovered/Not Resolved]
  - Pruritus [Not Recovered/Not Resolved]
  - Wound [Not Recovered/Not Resolved]
